FAERS Safety Report 8169621-7 (Version None)
Quarter: 2012Q1

REPORT INFORMATION
  Report Type: 
  Country: None (occurrence: None)
  Receive Date: 20120104
  Receipt Date: 20111129
  Transmission Date: 20120608
  Serious: No
  Sender: FDA-Public Use
  Company Number: 2011HGS-002876

PATIENT
  Age: 48 Year
  Sex: Female
  Weight: 106.5953 kg

DRUGS (11)
  1. BENLYSTA [Suspect]
     Indication: SYSTEMIC LUPUS ERYTHEMATOSUS
     Dosage: 10 MG/KG, 1 IN 28 D, INTRAVENOUS
     Route: 042
     Dates: start: 20110726
  2. ZANTAC [Concomitant]
  3. FLEXERIL [Concomitant]
  4. INSULIN, REGULAR (INSULIN) [Concomitant]
  5. BUMEX [Concomitant]
  6. NEURONTIN [Concomitant]
  7. PREDNISONE TAB [Concomitant]
  8. ACIPHEX [Concomitant]
  9. ASTHMA INHALER (EPINEPHRINE BITARTRATE) [Concomitant]
  10. TRAZODONE HCL [Concomitant]
  11. CELLCEPT [Concomitant]

REACTIONS (1)
  - PAIN [None]
